FAERS Safety Report 7426042-X (Version None)
Quarter: 2011Q2

REPORT INFORMATION
  Report Type: 
  Country: None (occurrence: None)
  Receive Date: 20110420
  Receipt Date: 20110406
  Transmission Date: 20111010
  Serious: Yes (Death, Hospitalization)
  Sender: FDA-Public Use
  Company Number: JP-ROCHE-771798

PATIENT
  Sex: Male

DRUGS (4)
  1. ELPLAT [Suspect]
     Indication: GASTROINTESTINAL CARCINOMA
     Dosage: DOSAGE IS UNCERTAIN.
     Route: 041
  2. LEVOFOLINATE [Suspect]
     Indication: GASTROINTESTINAL CARCINOMA
     Dosage: DRUG: LEVOFOLINATE CALCIUM(LEVOFOLINATE CALCIUM), DOSAGE IS UNCERTAIN.
     Route: 041
  3. FLUOROURACIL [Suspect]
     Indication: GASTROINTESTINAL CARCINOMA
     Dosage: DOSAGE IS UNCERTAIN.
     Route: 041
  4. AVASTIN [Suspect]
     Indication: GASTROINTESTINAL CARCINOMA
     Dosage: DOSAGE IS UNCERTAIN.
     Route: 041

REACTIONS (4)
  - MALAISE [None]
  - DISEASE PROGRESSION [None]
  - ADVERSE REACTION [None]
  - DEHYDRATION [None]
